FAERS Safety Report 16190844 (Version 1)
Quarter: 2019Q2

REPORT INFORMATION
  Report Type: Spontaneous
  Country: US (occurrence: US)
  Receive Date: 20190311
  Receipt Date: 20190311
  Transmission Date: 20190711
  Serious: No
  Sender: FDA-Public Use
  Company Number: None

PATIENT
  Age: 43 Year
  Sex: Male

DRUGS (1)
  1. GLATIRAMER 40MG PFS INJ (12/BOX) [Suspect]
     Active Substance: GLATIRAMER
     Route: 058
     Dates: start: 20190125

REACTIONS (6)
  - Fatigue [None]
  - Product substitution issue [None]
  - Condition aggravated [None]
  - Drug ineffective [None]
  - Therapy non-responder [None]
  - Motor dysfunction [None]

NARRATIVE: CASE EVENT DATE: 20190311
